FAERS Safety Report 15862703 (Version 2)
Quarter: 2019Q1

REPORT INFORMATION
  Report Type: Report from Study
  Country: CH (occurrence: CH)
  Receive Date: 20190124
  Receipt Date: 20190214
  Transmission Date: 20190417
  Serious: Yes (Hospitalization)
  Sender: FDA-Public Use
  Company Number: CH-INCYTE CORPORATION-2019IN000397

PATIENT

DRUGS (18)
  1. PLAK OUT [Concomitant]
     Indication: PROPHYLAXIS
     Dosage: UNK
     Route: 065
     Dates: start: 20181215, end: 20181220
  2. JAKAVI [Suspect]
     Active Substance: RUXOLITINIB
     Indication: POLYCYTHAEMIA VERA
     Dosage: 5 UNK, UNK
     Route: 048
     Dates: start: 20180816
  3. SERTRALINE [Concomitant]
     Active Substance: SERTRALINE HYDROCHLORIDE
     Indication: DEPRESSION
     Dosage: 50 MG, QD
     Route: 065
  4. ELIQUIS [Concomitant]
     Active Substance: APIXABAN
     Indication: THROMBOSIS
     Dosage: 10
     Route: 065
     Dates: start: 20181227
  5. LISINOPRIL MEPHA [Concomitant]
     Indication: HYPERTENSIVE CARDIOMYOPATHY
     Dosage: 5 MG, QD
     Route: 065
  6. LACRYCON                           /02221601/ [Concomitant]
     Indication: DRY EYE
     Dosage: UNK
     Route: 065
  7. ACIDUM FOLICUM [Concomitant]
     Active Substance: FOLIC ACID
     Indication: ANAEMIA
     Dosage: UNK
     Route: 065
     Dates: start: 20181216, end: 20181221
  8. CALCIMAGON                         /07357001/ [Concomitant]
     Indication: OSTEOPOROSIS
     Route: 065
  9. DEXPANTHENOL. [Concomitant]
     Active Substance: DEXPANTHENOL
     Indication: DRY SKIN
     Route: 065
  10. SURMONTIL [Concomitant]
     Active Substance: TRIMIPRAMINE MALEATE
     Indication: DEPRESSION
     Dosage: UNK
     Route: 065
  11. FUCIDIN (FUSIDIC ACID) [Concomitant]
     Active Substance: FUSIDIC ACID
     Indication: SKIN INFECTION
     Dosage: UNK
     Route: 065
     Dates: start: 20181215, end: 20181220
  12. FUCICORT [Concomitant]
     Active Substance: BETAMETHASONE VALERATE\FUSIDIC ACID
     Indication: SKIN INFECTION
     Dosage: UNK
     Route: 065
     Dates: start: 20181215, end: 20181220
  13. DAFALGAN [Concomitant]
     Active Substance: ACETAMINOPHEN
     Indication: PAIN
     Dosage: 500
     Route: 065
     Dates: start: 20181215
  14. JAKAVI [Suspect]
     Active Substance: RUXOLITINIB
     Dosage: 5 UNK, UNK
     Route: 048
     Dates: start: 20181228
  15. EXCIPIAL                           /00481901/ [Concomitant]
     Indication: PRURITUS GENERALISED
     Dosage: UNK
     Route: 065
     Dates: start: 20181215, end: 20181217
  16. VITAMIN D [Concomitant]
     Active Substance: CHOLECALCIFEROL
     Indication: PROPHYLAXIS
     Dosage: UNK
     Route: 065
  17. SERTRALINE [Concomitant]
     Active Substance: SERTRALINE HYDROCHLORIDE
     Indication: DEMENTIA
  18. CLEXANE [Concomitant]
     Active Substance: ENOXAPARIN SODIUM
     Indication: THROMBOSIS PROPHYLAXIS
     Dosage: 40
     Route: 065
     Dates: start: 20181216, end: 20181220

REACTIONS (1)
  - Urosepsis [Recovered/Resolved]

NARRATIVE: CASE EVENT DATE: 20181215
